FAERS Safety Report 5611098-7 (Version None)
Quarter: 2008Q1

REPORT INFORMATION
  Report Type: 
  Country: None (occurrence: None)
  Receive Date: 20080201
  Receipt Date: 20060223
  Transmission Date: 20080703
  Serious: Yes (Disabling)
  Sender: FDA-Public Use
  Company Number: PHBS2006IT20255

PATIENT
  Age: 62 Year
  Sex: Female

DRUGS (9)
  1. ZOMETA [Suspect]
     Indication: METASTASES TO BONE
     Dosage: 4 MG, QMO
     Route: 042
     Dates: start: 20040218, end: 20051025
  2. ZOMETA [Suspect]
     Dosage: 4 MG, QMO
     Route: 042
     Dates: start: 20060103
  3. XELODA [Concomitant]
  4. TAXOL [Concomitant]
  5. EUTIROX [Concomitant]
  6. ARIMIDEX [Concomitant]
  7. MEPRAL [Concomitant]
  8. FARLUTAL [Concomitant]
  9. FEMARA [Concomitant]

REACTIONS (2)
  - OSTEONECROSIS [None]
  - TOOTH ABSCESS [None]
